FAERS Safety Report 10235711 (Version 5)
Quarter: 2019Q3

REPORT INFORMATION
  Report Type: Spontaneous
  Country: US (occurrence: US)
  Receive Date: 20140613
  Receipt Date: 20190807
  Transmission Date: 20191004
  Serious: Yes (Disabling, Other)
  Sender: FDA-Public Use
  Company Number: US-PFIZER INC-2014162414

PATIENT
  Age: 65 Year
  Sex: Female
  Weight: 90.25 kg

DRUGS (16)
  1. CELEBREX [Suspect]
     Active Substance: CELECOXIB
     Indication: OSTEOARTHRITIS
  2. METHOCARBAMOLOL [Concomitant]
     Dosage: 750 MG, AS NEEDED
  3. CELEBREX [Suspect]
     Active Substance: CELECOXIB
     Indication: RHEUMATOID ARTHRITIS
  4. POTASSIUM [Concomitant]
     Active Substance: POTASSIUM
     Indication: BLOOD POTASSIUM DECREASED
     Dosage: 10 MEQ, 2X/DAY 1 AM 1 PM
  5. VITAMIN E [Concomitant]
     Active Substance: .ALPHA.-TOCOPHEROL
     Dosage: 400 IU, 1X/DAY 1 AM
  6. CALTRATE 600+D [Concomitant]
     Indication: BLOOD CALCIUM DECREASED
     Dosage: UNK, 2X/DAY 1 AM 1 PM
  7. TRIAM-HCTZ [Concomitant]
     Indication: EAR DISORDER
     Dosage: HYDROCHLOROTHIAZIDE 25, TRIAMTERENE 37.5, 1X/DAY (1 AM)
  8. LEVOTHYROXINE SODIUM. [Concomitant]
     Active Substance: LEVOTHYROXINE SODIUM
     Indication: THYROID DISORDER
     Dosage: 0.05 MG, 1X/DAY (1 AM)
  9. CENTRUM SILVER [Concomitant]
     Active Substance: MINERALS\VITAMINS
     Dosage: UNK, 1X/DAY 1 AM
  10. ARAVA [Concomitant]
     Active Substance: LEFLUNOMIDE
     Indication: ARTHRITIS
     Dosage: 20 MG, 1X/DAY (1 AM)
     Dates: start: 2003
  11. OMEPRAZOLE. [Concomitant]
     Active Substance: OMEPRAZOLE
     Indication: ABDOMINAL DISCOMFORT
     Dosage: 20 MG, 1X/DAY, 1AM
  12. SIMVASTATIN. [Concomitant]
     Active Substance: SIMVASTATIN
     Indication: BLOOD CHOLESTEROL
     Dosage: 80 MG, 1 PM
  13. HYDROCO-APAP [Concomitant]
     Indication: PAIN
     Dosage: HYDROCODONE BITARTRATE 7.5, PARACETAMOL 500, AS NEEDED
  14. HUMIRA [Concomitant]
     Active Substance: ADALIMUMAB
     Indication: RHEUMATOID ARTHRITIS
     Dosage: 40 MG EVERY OTHER WEEK
     Dates: start: 2003
  15. CELEBREX [Suspect]
     Active Substance: CELECOXIB
     Indication: ARTHRITIS
     Dosage: 200 MG, 2X/DAY (1 AM, 1 PM)
     Dates: start: 1989
  16. HUMIRA [Concomitant]
     Active Substance: ADALIMUMAB
     Indication: ARTHRITIS

REACTIONS (3)
  - Glaucoma [Not Recovered/Not Resolved]
  - Spinal stenosis [Not Recovered/Not Resolved]
  - Drug ineffective [Not Recovered/Not Resolved]

NARRATIVE: CASE EVENT DATE: 20140610
